FAERS Safety Report 7701263-7 (Version None)
Quarter: 2011Q3

REPORT INFORMATION
  Report Type: 
  Country: None (occurrence: None)
  Receive Date: 20110822
  Receipt Date: 20110808
  Transmission Date: 20111222
  Serious: Yes (Hospitalization)
  Sender: FDA-Public Use
  Company Number: JP-GLAXOSMITHKLINE-B0739311A

PATIENT
  Sex: Female

DRUGS (3)
  1. UNKNOWN DRUG [Concomitant]
     Route: 065
  2. VALTREX [Suspect]
     Indication: HERPES ZOSTER
     Dosage: 3000MG PER DAY
     Route: 048
     Dates: start: 20110803, end: 20110807
  3. UNKNOWN DRUG [Concomitant]
     Indication: HYPERLIPIDAEMIA
     Route: 065

REACTIONS (9)
  - RENAL IMPAIRMENT [None]
  - C-REACTIVE PROTEIN INCREASED [None]
  - BLOOD CREATINE PHOSPHOKINASE DECREASED [None]
  - BLOOD URIC ACID INCREASED [None]
  - BLOOD CREATININE INCREASED [None]
  - TOOTH INJURY [None]
  - ENCEPHALOPATHY [None]
  - JOINT INJURY [None]
  - BLOOD UREA INCREASED [None]
